FAERS Safety Report 14426911 (Version 2)
Quarter: 2018Q1

REPORT INFORMATION
  Report Type: Spontaneous
  Country: US (occurrence: US)
  Receive Date: 20180123
  Receipt Date: 20180201
  Transmission Date: 20180509
  Serious: Yes (Hospitalization, Other)
  Sender: FDA-Public Use
  Company Number: US-DSJP-DSU-2017-133736

PATIENT

DRUGS (1)
  1. BENICAR [Suspect]
     Active Substance: OLMESARTAN MEDOXOMIL
     Indication: HYPERTENSION
     Dosage: 20 MG, QD
     Route: 048
     Dates: start: 20070113, end: 20131230

REACTIONS (7)
  - Infectious colitis [Unknown]
  - Haemorrhoids [Unknown]
  - Syncope [Unknown]
  - Coeliac disease [Unknown]
  - Renal failure [Unknown]
  - Sprue-like enteropathy [Recovered/Resolved]
  - Diverticulum [Not Recovered/Not Resolved]

NARRATIVE: CASE EVENT DATE: 20071030
